FAERS Safety Report 5056829-2 (Version None)
Quarter: 2006Q2

REPORT INFORMATION
  Report Type: 
  Country: None (occurrence: None)
  Receive Date: 20060620
  Receipt Date: 20050714
  Transmission Date: 20061013
  Serious: Yes (Hospitalization)
  Sender: FDA-Public Use
  Company Number: 05H-163-0301124-00

PATIENT
  Age: 80 Year
  Sex: Male

DRUGS (7)
  1. HEPARIN SODIUM INJECTION [Suspect]
     Indication: ACUTE CORONARY SYNDROME
     Dosage: SEE IMAGE
     Dates: start: 20050630
  2. ASPIRIN [Concomitant]
  3. INTEGRILIN [Concomitant]
  4. LISINOPRIL [Concomitant]
  5. LESCOL [Concomitant]
  6. ACTOS [Concomitant]
  7. LOPRESSOR [Concomitant]

REACTIONS (1)
  - THROMBOCYTOPENIA [None]
